FAERS Safety Report 5523212-2 (Version None)
Quarter: 2007Q4

REPORT INFORMATION
  Report Type: 
  Country: None (occurrence: None)
  Receive Date: 20071116
  Receipt Date: 20071116
  Transmission Date: 20080405
  Serious: Yes (Other)
  Sender: FDA-Public Use
  Company Number: None

PATIENT
  Sex: Female
  Weight: 95.2554 kg

DRUGS (1)
  1. CYMBALTA [Suspect]
     Indication: DEPRESSION
     Dates: start: 20050901, end: 20071101

REACTIONS (12)
  - CRYING [None]
  - DIARRHOEA [None]
  - DRUG WITHDRAWAL SYNDROME [None]
  - FATIGUE [None]
  - HOT FLUSH [None]
  - IRRITABILITY [None]
  - NAUSEA [None]
  - NECK PAIN [None]
  - NERVOUS SYSTEM DISORDER [None]
  - TINNITUS [None]
  - VISION BLURRED [None]
  - VOMITING [None]
